FAERS Safety Report 16589579 (Version 1)
Quarter: 2019Q3

REPORT INFORMATION
  Report Type: Spontaneous
  Country: DE (occurrence: DE)
  Receive Date: 20190718
  Receipt Date: 20190718
  Transmission Date: 20191004
  Serious: Yes (Death, Hospitalization)
  Sender: FDA-Public Use
  Company Number: DE-ACCORD-139016

PATIENT
  Age: 57 Year
  Sex: Male
  Weight: 71 kg

DRUGS (8)
  1. NEUPOGEN [Concomitant]
     Active Substance: FILGRASTIM
     Dosage: 48 IU, SCHEME, SOLUTION FOR INJECTION / INFUSION, STRENGTH:  48 MIO. E.
     Route: 058
  2. GEMCITABINE/GEMCITABINE HYDROCHLORIDE [Suspect]
     Active Substance: GEMCITABINE\GEMCITABINE HYDROCHLORIDE
     Indication: PRODUCT USED FOR UNKNOWN INDICATION
     Route: 042
  3. LOPERAMIDE [Concomitant]
     Active Substance: LOPERAMIDE
     Dosage: 2 MG, NEED, TABLETS
     Route: 048
  4. ONDANSETRON [Concomitant]
     Active Substance: ONDANSETRON
     Dosage: 8 MG, SCHEME, TABLETS
     Route: 048
  5. PANGROL [Concomitant]
     Active Substance: PANCRELIPASE
     Dosage: 25000 IU, SCHEME, CAPSULES, ALSO TAKEN PANGROL 40000 IU CAPSULES
     Route: 048
  6. KALIUM [Concomitant]
     Active Substance: POTASSIUM CHLORIDE
     Dosage: 1 CAPSULE ACCORDING TO POTASSIUM, 1-1-0-0, CAPSULES
     Route: 048
  7. PANTOPRAZOLE [Concomitant]
     Active Substance: PANTOPRAZOLE
     Dosage: 40 MG, 1-0-0-0, TABLET
     Route: 048
  8. DEXAMETHASONE. [Concomitant]
     Active Substance: DEXAMETHASONE
     Dosage: 8 MG, SCHEME, TABLETS
     Route: 048

REACTIONS (5)
  - Cough [Unknown]
  - Flank pain [Unknown]
  - Pyrexia [Unknown]
  - General physical health deterioration [Unknown]
  - Dehydration [Unknown]
